FAERS Safety Report 14266290 (Version 2)
Quarter: 2017Q4

REPORT INFORMATION
  Report Type: Spontaneous
  Country: CH (occurrence: CH)
  Receive Date: 20171210
  Receipt Date: 20171214
  Transmission Date: 20180321
  Serious: Yes (Hospitalization, Other)
  Sender: FDA-Public Use
  Company Number: CH-ASTRAZENECA-2017SF24623

PATIENT
  Age: 21188 Day
  Sex: Male

DRUGS (16)
  1. PREDNISONE. [Concomitant]
     Active Substance: PREDNISONE
     Dates: start: 20171101, end: 20171105
  2. TRAMAL [Concomitant]
     Active Substance: TRAMADOL
     Dates: start: 20171106
  3. PASPERTIN [Concomitant]
     Active Substance: METOCLOPRAMIDE HYDROCHLORIDE
     Dates: start: 20171106
  4. METHOTREXATE. [Interacting]
     Active Substance: METHOTREXATE
     Indication: TESTIS CANCER
     Dosage: 5280.0MG UNKNOWN
     Route: 041
     Dates: start: 20171102, end: 20171102
  5. VINCRISTINE [Concomitant]
     Active Substance: VINCRISTINE
     Dates: start: 20171101, end: 20171101
  6. ONDANSETRON [Concomitant]
     Active Substance: ONDANSETRON
     Dates: start: 20171106
  7. NEULASTA [Concomitant]
     Active Substance: PEGFILGRASTIM
     Dates: start: 20171101, end: 20171101
  8. GLUCOPHAGE [Concomitant]
     Active Substance: METFORMIN HYDROCHLORIDE
     Dates: start: 20171106
  9. SEVIKAR HCT [Concomitant]
     Active Substance: AMLODIPINE BESYLATE\HYDROCHLOROTHIAZIDE\OLMESARTAN MEDOXOMIL
     Dates: start: 20171106
  10. ZOLPIDEM [Concomitant]
     Active Substance: ZOLPIDEM\ZOLPIDEM TARTRATE
     Dates: start: 20171106
  11. ENDOXAN [Suspect]
     Active Substance: CYCLOPHOSPHAMIDE
     Dosage: 1320.0MG UNKNOWN
     Route: 041
     Dates: start: 20171101, end: 20171101
  12. DAFALGAN [Concomitant]
     Active Substance: ACETAMINOPHEN
     Dates: start: 20171106
  13. NEXIUM [Suspect]
     Active Substance: ESOMEPRAZOLE MAGNESIUM
     Route: 048
     Dates: start: 20171106
  14. FOLINIC ACID [Concomitant]
     Active Substance: LEUCOVORIN
     Dates: start: 20171103, end: 20171105
  15. MABTHERA [Concomitant]
     Active Substance: RITUXIMAB
     Dates: start: 20171101, end: 20171101
  16. FORXIGA [Concomitant]
     Active Substance: DAPAGLIFLOZIN
     Dates: start: 20171106

REACTIONS (1)
  - Acute kidney injury [Not Recovered/Not Resolved]

NARRATIVE: CASE EVENT DATE: 20171108
